FAERS Safety Report 9630632 (Version 1)
Quarter: 2013Q4

REPORT INFORMATION
  Report Type: Spontaneous
  Country: US (occurrence: None)
  Receive Date: 20131016
  Receipt Date: 20131016
  Transmission Date: 20140711
  Serious: Yes (Hospitalization, Other)
  Sender: FDA-Public Use
  Company Number: VAL_02769_2013

PATIENT
  Age: 72 Year
  Sex: Male
  Weight: 98.4 kg

DRUGS (6)
  1. LOPRESSOR HCT [Suspect]
     Indication: HYPERTENSION
     Dosage: 1 DF
     Route: 048
     Dates: start: 2007, end: 20130701
  2. SYNTHROID [Concomitant]
  3. ZOCOR [Concomitant]
  4. PRILOSEC /00661201/ [Concomitant]
  5. LORATAB [Concomitant]
  6. ALEVE [Concomitant]

REACTIONS (2)
  - Blood potassium decreased [None]
  - Mental status changes [None]
